FAERS Safety Report 9524988 (Version 1)
Quarter: 2013Q1

REPORT INFORMATION
  Report Type: Spontaneous
  Country: US (occurrence: None)
  Receive Date: 20130314
  Receipt Date: 20130314
  Transmission Date: 20140127
  Serious: No
  Sender: FDA-Public Use
  Company Number: 1301USA005856

PATIENT
  Age: 50 Year
  Sex: Male

DRUGS (3)
  1. VICTRELIS (BOCEPREVIR) CAPSULE [Suspect]
     Indication: HEPATITIS C
     Dosage: 800 MG, TID, ORAL
     Route: 048
     Dates: start: 20121126
  2. PEGASYS (PEGINTERFERON ALFA-2A) [Concomitant]
  3. RIBAPAK (RIBAVIRIN) [Concomitant]

REACTIONS (9)
  - Platelet count decreased [None]
  - Haemoglobin decreased [None]
  - Fatigue [None]
  - Agitation [None]
  - Dysgeusia [None]
  - Influenza like illness [None]
  - Injection site erythema [None]
  - Rash pruritic [None]
  - Nausea [None]
